FAERS Safety Report 14857907 (Version 2)
Quarter: 2018Q2

REPORT INFORMATION
  Report Type: Spontaneous
  Country: US (occurrence: US)
  Receive Date: 20180508
  Receipt Date: 20180524
  Transmission Date: 20180711
  Serious: Yes (Other)
  Sender: FDA-Public Use
  Company Number: US-ABBVIE-18S-163-2340385-00

PATIENT
  Age: 17 Year
  Sex: Male

DRUGS (5)
  1. TESTOGEL [Suspect]
     Active Substance: TESTOSTERONE
     Dosage: 1 PUFF DAILY (IN THE EVENING)
     Route: 062
     Dates: start: 20180503
  2. TESTOGEL [Suspect]
     Active Substance: TESTOSTERONE
     Dosage: ONE SACHET DAILY (1 DOSAGE FORMS,1 IN 1 D)
     Route: 062
     Dates: start: 20160503, end: 20180417
  3. TESTOGEL [Suspect]
     Active Substance: TESTOSTERONE
     Indication: CONGENITAL ANDROGEN DEFICIENCY
     Dosage: 1 PUFF DAILY (IN THE EVENING) (1 DOSAGE FORMS,1 IN 1 D)
     Route: 062
     Dates: start: 20180418, end: 20180425
  4. TESTOGEL [Suspect]
     Active Substance: TESTOSTERONE
     Dosage: IN THE EVENING
     Route: 062
     Dates: start: 20180513
  5. AMOXICILLIN. [Suspect]
     Active Substance: AMOXICILLIN
     Indication: TONSILLITIS
     Route: 048
     Dates: start: 20180417, end: 20180423

REACTIONS (7)
  - Pain of skin [Recovered/Resolved]
  - Dyspnoea [Recovered/Resolved]
  - Rash erythematous [Recovered/Resolved]
  - Condition aggravated [Recovered/Resolved]
  - Product use issue [Recovered/Resolved]
  - Pruritus generalised [Recovered/Resolved]
  - Rash maculo-papular [Recovered/Resolved]

NARRATIVE: CASE EVENT DATE: 2016
